FAERS Safety Report 7053186-7 (Version None)
Quarter: 2010Q4

REPORT INFORMATION
  Report Type: 
  Country: None (occurrence: None)
  Receive Date: 20101020
  Receipt Date: 20101011
  Transmission Date: 20110411
  Serious: Yes (Other)
  Sender: FDA-Public Use
  Company Number: US-JNJFOC-20101003753

PATIENT
  Sex: Female
  Weight: 79.38 kg

DRUGS (1)
  1. STELARA [Suspect]
     Indication: PSORIATIC ARTHROPATHY
     Route: 058

REACTIONS (3)
  - KNEE ARTHROPLASTY [None]
  - OFF LABEL USE [None]
  - PSORIASIS [None]
